FAERS Safety Report 5405388-0 (Version None)
Quarter: 2007Q3

REPORT INFORMATION
  Report Type: 
  Country: None (occurrence: None)
  Receive Date: 20070803
  Receipt Date: 20070731
  Transmission Date: 20080115
  Serious: Yes (Hospitalization)
  Sender: FDA-Public Use
  Company Number: JP-ROXANE LABORATORIES, INC-2007-BP-18422RO

PATIENT
  Age: 74 Year
  Sex: Male

DRUGS (4)
  1. LOPERAMIDE HCL [Suspect]
     Indication: DIARRHOEA
     Route: 048
     Dates: start: 20040818
  2. CEFOTIAM HYDROCHLORIDE [Concomitant]
     Indication: INFECTION PROPHYLAXIS
  3. CLINDAMYCIN HCL [Concomitant]
     Indication: INFECTION PROPHYLAXIS
  4. CEFCAPENE PIVOXIL [Concomitant]
     Indication: INFECTION PROPHYLAXIS

REACTIONS (9)
  - ABDOMINAL DISTENSION [None]
  - ABDOMINAL TENDERNESS [None]
  - ASCITES [None]
  - CLOSTRIDIAL INFECTION [None]
  - DRUG INEFFECTIVE [None]
  - GASTROINTESTINAL SOUNDS ABNORMAL [None]
  - MALAISE [None]
  - MEGACOLON [None]
  - WHITE BLOOD CELL COUNT INCREASED [None]
